FAERS Safety Report 11754067 (Version 2)
Quarter: 2015Q4

REPORT INFORMATION
  Report Type: Spontaneous
  Country: SK (occurrence: SK)
  Receive Date: 20151119
  Receipt Date: 20151202
  Transmission Date: 20160304
  Serious: Yes (Life-Threatening, Hospitalization)
  Sender: FDA-Public Use
  Company Number: SK-MALLINCKRODT-T201505259

PATIENT
  Age: 47 Year
  Sex: Female

DRUGS (1)
  1. OPTIRAY [Suspect]
     Active Substance: IOVERSOL
     Indication: OVARIAN CANCER
     Dosage: 100 ML, SINGLE
     Route: 042
     Dates: start: 20151009, end: 20151009

REACTIONS (3)
  - Suffocation feeling [Unknown]
  - Dyspnoea [Unknown]
  - Laryngospasm [Unknown]

NARRATIVE: CASE EVENT DATE: 20151009
